FAERS Safety Report 5275580-7 (Version None)
Quarter: 2007Q1

REPORT INFORMATION
  Report Type: 
  Country: None (occurrence: None)
  Receive Date: 20070321
  Receipt Date: 20070129
  Transmission Date: 20070707
  Serious: Yes (Hospitalization, Other)
  Sender: FDA-Public Use
  Company Number: 236348K06USA

PATIENT
  Age: 51 Year
  Sex: Female
  Weight: 99.7913 kg

DRUGS (7)
  1. REBIF [Suspect]
     Indication: MULTIPLE SCLEROSIS
     Dosage: 44 MCG, 3 IN 1 WEEKS, SUBCUTANEOUS
     Route: 058
     Dates: start: 20051020
  2. HYZAAR 100-25 (HYZAAR) [Concomitant]
  3. XALATAN [Concomitant]
  4. ALPHAGAN [Concomitant]
  5. PREVACID [Concomitant]
  6. SANCTURA (ALL OTHER THERAPEUTIC PRODUCTS) [Concomitant]
  7. ZOLOFT [Concomitant]

REACTIONS (2)
  - DIABETES MELLITUS [None]
  - THYROID DISORDER [None]
